FAERS Safety Report 8467396-5 (Version None)
Quarter: 2012Q2

REPORT INFORMATION
  Report Type: 
  Country: None (occurrence: None)
  Receive Date: 20120626
  Receipt Date: 20120623
  Transmission Date: 20120825
  Serious: Yes (Other)
  Sender: FDA-Public Use
  Company Number: PHHY2011MX95110

PATIENT
  Sex: Female

DRUGS (2)
  1. DIOVAN [Suspect]
     Indication: HYPERTENSION
     Dosage: 160 MG, (ONE TABLET PER DAY)
     Dates: start: 20110701
  2. DIOVAN [Suspect]
     Dosage: 2 DF (80 MG), DAILY

REACTIONS (2)
  - SPINAL CORD HERNIATION [None]
  - INFLAMMATION [None]
